FAERS Safety Report 24220372 (Version 1)
Quarter: 2024Q3

REPORT INFORMATION
  Report Type: Spontaneous
  Country: FR (occurrence: FR)
  Receive Date: 20240818
  Receipt Date: 20240818
  Transmission Date: 20241016
  Serious: Yes (Life-Threatening, Other)
  Sender: AUROBINDO
  Company Number: FR-AFSSAPS-NC2024000945

PATIENT
  Age: 59 Year
  Sex: Female
  Weight: 85 kg

DRUGS (1)
  1. METFORMIN HYDROCHLORIDE [Suspect]
     Active Substance: METFORMIN HYDROCHLORIDE
     Indication: Type 2 diabetes mellitus
     Dosage: 3 DOSAGE FORM, ONCE A DAY
     Route: 048
     Dates: end: 20231225

REACTIONS (2)
  - Acute kidney injury [Recovered/Resolved with Sequelae]
  - Lactic acidosis [Recovered/Resolved]

NARRATIVE: CASE EVENT DATE: 20211225
